FAERS Safety Report 16038940 (Version 2)
Quarter: 2019Q1

REPORT INFORMATION
  Report Type: Report from Study
  Country: US (occurrence: US)
  Receive Date: 20190306
  Receipt Date: 20190329
  Transmission Date: 20190418
  Serious: Yes (Hospitalization)
  Sender: FDA-Public Use
  Company Number: PHEH2019US008694

PATIENT
  Sex: Male

DRUGS (1)
  1. ENTRESTO [Suspect]
     Active Substance: SACUBITRIL\VALSARTAN
     Indication: PRODUCT USED FOR UNKNOWN INDICATION
     Route: 048

REACTIONS (7)
  - Atrial fibrillation [Unknown]
  - Pulmonary oedema [Unknown]
  - Dyspnoea [Unknown]
  - Cardiac arrest [Unknown]
  - Fluid retention [Unknown]
  - Back pain [Unknown]
  - Pain in extremity [Unknown]
